FAERS Safety Report 6594404-9 (Version None)
Quarter: 2010Q1

REPORT INFORMATION
  Report Type: 
  Country: None (occurrence: None)
  Receive Date: 20100222
  Receipt Date: 20100215
  Transmission Date: 20100710
  Serious: Yes (Other)
  Sender: FDA-Public Use
  Company Number: B0626353A

PATIENT
  Sex: Female

DRUGS (3)
  1. PAXIL [Suspect]
     Indication: DRUG USE FOR UNKNOWN INDICATION
     Route: 048
     Dates: start: 20080416
  2. RIVOTRIL [Concomitant]
     Dosage: 1MG PER DAY
     Route: 048
     Dates: start: 20071001
  3. EPADEL [Concomitant]
     Dosage: 1800MG PER DAY
     Route: 048
     Dates: start: 20090401

REACTIONS (3)
  - ANAEMIA [None]
  - ARRHYTHMIA [None]
  - ELECTROCARDIOGRAM ABNORMAL [None]
